FAERS Safety Report 8352425-X (Version None)
Quarter: 2012Q2

REPORT INFORMATION
  Report Type: 
  Country: None (occurrence: None)
  Receive Date: 20120511
  Receipt Date: 20120504
  Transmission Date: 20120825
  Serious: Yes (Other)
  Sender: FDA-Public Use
  Company Number: PHHY2012MX038557

PATIENT
  Age: 38 Year
  Sex: Male

DRUGS (1)
  1. DESFERAL [Suspect]
     Dosage: 2 G, QD, (1 VIAL)
     Dates: start: 20040401, end: 20100401

REACTIONS (4)
  - GAIT DISTURBANCE [None]
  - CONSTIPATION [None]
  - HAEMOCHROMATOSIS [None]
  - DYSPNOEA [None]
